FAERS Safety Report 9072346 (Version 1)
Quarter: 2013Q1

REPORT INFORMATION
  Report Type: Report from Study
  Country: US (occurrence: US)
  Receive Date: 20130129
  Receipt Date: 20130129
  Transmission Date: 20140127
  Serious: No
  Sender: FDA-Public Use
  Company Number: US-ABBOTT-12P-163-0920673-00

PATIENT
  Sex: Female

DRUGS (11)
  1. HUMIRA 40 MG/0.8 ML PEN [Suspect]
     Indication: RHEUMATOID ARTHRITIS
     Dates: start: 201201
  2. UNNAMED TYPE OF INSULIN [Concomitant]
     Indication: DIABETES MELLITUS
  3. NORVASC [Concomitant]
     Indication: HYPERTENSION
  4. BENICAR [Concomitant]
     Indication: HYPERTENSION
  5. PROVERA [Concomitant]
     Indication: DYSFUNCTIONAL UTERINE BLEEDING
  6. MOBIC [Concomitant]
     Indication: RHEUMATOID ARTHRITIS
  7. MOBIC [Concomitant]
     Indication: OSTEOARTHRITIS
  8. ULTRAM [Concomitant]
     Indication: PAIN
  9. METHOTREXATE [Concomitant]
     Indication: RHEUMATOID ARTHRITIS
  10. FOLIC ACID [Concomitant]
     Indication: VITAMIN SUPPLEMENTATION
  11. LEVEMIR [Concomitant]
     Indication: DIABETES MELLITUS

REACTIONS (1)
  - Injection site pain [Not Recovered/Not Resolved]
